FAERS Safety Report 8997133 (Version 2)
Quarter: 2013Q1

REPORT INFORMATION
  Report Type: Spontaneous
  Country: JP (occurrence: JP)
  Receive Date: 20130104
  Receipt Date: 20130130
  Transmission Date: 20140127
  Serious: Yes (Hospitalization)
  Sender: FDA-Public Use
  Company Number: JP-AMGEN-JPNSP2012084331

PATIENT
  Age: 61 Year
  Sex: Female

DRUGS (2)
  1. ENBREL [Suspect]
     Indication: RHEUMATOID ARTHRITIS
     Dosage: 50 MG,WEEKLY
     Route: 058
     Dates: start: 200811, end: 200901
  2. ENBREL [Suspect]
     Dosage: UNK MG, WEEKLY
     Dates: start: 201111

REACTIONS (2)
  - Diarrhoea [Unknown]
  - Sarcoidosis [Recovered/Resolved]
